FAERS Safety Report 5041261-8 (Version None)
Quarter: 2006Q2

REPORT INFORMATION
  Report Type: 
  Country: None (occurrence: None)
  Receive Date: 20060601
  Receipt Date: 20060328
  Transmission Date: 20061013
  Serious: No
  Sender: FDA-Public Use
  Company Number: 2006PV011064

PATIENT
  Age: 40 Year
  Sex: Male
  Weight: 133.8111 kg

DRUGS (11)
  1. BYETTA [Suspect]
     Indication: DIABETES MELLITUS NON-INSULIN-DEPENDENT
     Dosage: SEE IMAGE
     Route: 058
     Dates: start: 20051101, end: 20060101
  2. BYETTA [Suspect]
     Indication: DIABETES MELLITUS NON-INSULIN-DEPENDENT
     Dosage: SEE IMAGE
     Route: 058
     Dates: start: 20060101
  3. GLIPIZIDE [Concomitant]
  4. METFORMIN [Concomitant]
  5. ZELNOR [Concomitant]
  6. COREG [Concomitant]
  7. ASPIRIN [Concomitant]
  8. NEXIUM [Concomitant]
  9. LYRICA [Concomitant]
  10. FISH OIL [Concomitant]
  11. VITAMIN E [Concomitant]

REACTIONS (6)
  - ABDOMINAL PAIN [None]
  - BLOOD GLUCOSE DECREASED [None]
  - HYPERTENSION [None]
  - NAUSEA [None]
  - POLYURIA [None]
  - WEIGHT DECREASED [None]
